FAERS Safety Report 4598188-5 (Version None)
Quarter: 2005Q1

REPORT INFORMATION
  Report Type: 
  Country: None (occurrence: None)
  Receive Date: 20050304
  Receipt Date: 20050224
  Transmission Date: 20050727
  Serious: Yes (Disabling)
  Sender: FDA-Public Use
  Company Number: PHBS2005PT02891

PATIENT
  Age: 74 Year
  Sex: Male

DRUGS (5)
  1. CO-DIOVAN [Suspect]
  2. LORAZEPAM [Concomitant]
     Route: 048
  3. BACLOFEN [Concomitant]
     Route: 048
  4. AMITRIPTYLINE HYDROCHLORIDE [Concomitant]
     Route: 048
  5. OMEPRAZOLE [Concomitant]

REACTIONS (6)
  - CONSTIPATION [None]
  - INFLUENZA LIKE ILLNESS [None]
  - PRURITUS [None]
  - PYREXIA [None]
  - RASH [None]
  - VOMITING [None]
